FAERS Safety Report 6470887-X (Version None)
Quarter: 2009Q4

REPORT INFORMATION
  Report Type: 
  Country: None (occurrence: None)
  Receive Date: 20091203
  Receipt Date: 20080129
  Transmission Date: 20100525
  Serious: Yes (Hospitalization)
  Sender: FDA-Public Use
  Company Number: US-ELI_LILLY_AND_COMPANY-US200801001605

PATIENT
  Sex: Female

DRUGS (5)
  1. FORTEO [Suspect]
     Indication: OSTEOPOROSIS
     Dosage: 20 UG, DAILY (1/D)
     Route: 058
     Dates: start: 20070912, end: 20071227
  2. REQUIP [Concomitant]
     Dosage: 2 MG, 3/D
  3. ASACOL [Concomitant]
     Dosage: 1600 MG, 3/D
  4. HYDROCORTISONE ENEMA [Concomitant]
     Route: 054
  5. SYMMETREL [Concomitant]
     Dosage: UNK MG, 3/D

REACTIONS (5)
  - BLOOD PRESSURE INCREASED [None]
  - FATIGUE [None]
  - FEELING ABNORMAL [None]
  - HEADACHE [None]
  - HEART RATE INCREASED [None]
